FAERS Safety Report 24387720 (Version 1)
Quarter: 2024Q4

REPORT INFORMATION
  Report Type: Spontaneous
  Country: US (occurrence: None)
  Receive Date: 20241001
  Receipt Date: 20241001
  Transmission Date: 20250114
  Serious: Yes (Hospitalization)
  Sender: Public
  Company Number: None

PATIENT
  Age: 27 Year
  Sex: Male
  Weight: 38 kg

DRUGS (1)
  1. TRAZODONE HCL [Suspect]
     Active Substance: TRAZODONE HYDROCHLORIDE
     Indication: Priapism
     Dosage: 25.00 MG DAILY ORAL
     Route: 048

REACTIONS (2)
  - Penile pain [None]
  - Penile swelling [None]

NARRATIVE: CASE EVENT DATE: 20231227
